FAERS Safety Report 15868747 (Version 2)
Quarter: 2019Q2

REPORT INFORMATION
  Report Type: Spontaneous
  Country: US (occurrence: US)
  Receive Date: 20190125
  Receipt Date: 20190418
  Transmission Date: 20190711
  Serious: Yes (Other)
  Sender: FDA-Public Use
  Company Number: US-ASTRAZENECA-2018SF33313

PATIENT
  Age: 25920 Day
  Sex: Female
  Weight: 57.2 kg

DRUGS (40)
  1. PRILOSEC OTC [Suspect]
     Active Substance: OMEPRAZOLE MAGNESIUM
     Route: 048
     Dates: start: 20050308
  2. PRAMIPEXOLE DIHYDROCHLORIDE. [Concomitant]
     Active Substance: PRAMIPEXOLE DIHYDROCHLORIDE
  3. MIRTAZAPINE. [Concomitant]
     Active Substance: MIRTAZAPINE
  4. ESCITALOPRAM OXALATE. [Concomitant]
     Active Substance: ESCITALOPRAM OXALATE
  5. CILOSTAZOL. [Concomitant]
     Active Substance: CILOSTAZOL
  6. NITROFURANTOIN. [Concomitant]
     Active Substance: NITROFURANTOIN
  7. ZOLPIDEM [Concomitant]
     Active Substance: ZOLPIDEM\ZOLPIDEM TARTRATE
  8. CEFUROXIME. [Concomitant]
     Active Substance: CEFUROXIME
  9. FUROSEMIDE. [Concomitant]
     Active Substance: FUROSEMIDE
     Dates: start: 20080606
  10. LEVOFLOXACIN. [Concomitant]
     Active Substance: LEVOFLOXACIN
     Dates: start: 20100702
  11. MEDROL [Concomitant]
     Active Substance: METHYLPREDNISOLONE
  12. CEPHALEXIN. [Concomitant]
     Active Substance: CEPHALEXIN
  13. METFORMIN [Concomitant]
     Active Substance: METFORMIN HYDROCHLORIDE
  14. VYTORIN [Concomitant]
     Active Substance: EZETIMIBE\SIMVASTATIN
  15. ZANTAC [Concomitant]
     Active Substance: RANITIDINE HYDROCHLORIDE
  16. SIMVASTATIN. [Concomitant]
     Active Substance: SIMVASTATIN
  17. DIAZEPAM. [Concomitant]
     Active Substance: DIAZEPAM
  18. PROMETHAZINE [Concomitant]
     Active Substance: PROMETHAZINE\PROMETHAZINE HYDROCHLORIDE
  19. CIPROFLOXACIN. [Concomitant]
     Active Substance: CIPROFLOXACIN
     Dates: start: 20090429
  20. ALLOPURINOL. [Concomitant]
     Active Substance: ALLOPURINOL
  21. IMDUR [Concomitant]
     Active Substance: ISOSORBIDE MONONITRATE
  22. OMEPRAZOLE. [Concomitant]
     Active Substance: OMEPRAZOLE
     Route: 048
     Dates: start: 20160829
  23. PLAVIX [Concomitant]
     Active Substance: CLOPIDOGREL BISULFATE
     Dates: start: 20071023
  24. LUNESTA [Concomitant]
     Active Substance: ESZOPICLONE
     Dates: start: 20090506
  25. CLOPIDOGREL [Concomitant]
     Active Substance: CLOPIDOGREL BISULFATE
  26. PRILOSEC OTC [Suspect]
     Active Substance: OMEPRAZOLE MAGNESIUM
     Route: 048
     Dates: start: 2005, end: 2016
  27. LISINOPRIL. [Concomitant]
     Active Substance: LISINOPRIL
  28. OMEPRAZOLE. [Concomitant]
     Active Substance: OMEPRAZOLE
     Route: 048
     Dates: start: 20140516
  29. SUCRALFATE. [Concomitant]
     Active Substance: SUCRALFATE
     Dates: start: 20100702
  30. ASPIRIN. [Concomitant]
     Active Substance: ASPIRIN
  31. OMEPRAZOLE. [Concomitant]
     Active Substance: OMEPRAZOLE
     Route: 048
     Dates: start: 20051206
  32. NAMENDA [Concomitant]
     Active Substance: MEMANTINE HYDROCHLORIDE
     Dates: start: 20100702
  33. OMEPRAZOLE. [Suspect]
     Active Substance: OMEPRAZOLE
     Route: 065
  34. METOPROLOL SUCCINATE. [Concomitant]
     Active Substance: METOPROLOL SUCCINATE
  35. AMITRIPTYLINE [Concomitant]
     Active Substance: AMITRIPTYLINE
  36. CALCITRIOL. [Concomitant]
     Active Substance: CALCITRIOL
  37. CLINDAMYCIN HYDROCHLORIDE. [Concomitant]
     Active Substance: CLINDAMYCIN HYDROCHLORIDE
  38. BENZONATATE. [Concomitant]
     Active Substance: BENZONATATE
  39. INDOMETHACIN. [Concomitant]
     Active Substance: INDOMETHACIN
  40. CARVEDILOL. [Concomitant]
     Active Substance: CARVEDILOL
     Dates: start: 20071023

REACTIONS (6)
  - Type 2 diabetes mellitus [Unknown]
  - Anaemia of chronic disease [Unknown]
  - Essential hypertension [Unknown]
  - Hyperparathyroidism secondary [Unknown]
  - Chronic kidney disease [Unknown]
  - Gastrooesophageal reflux disease [Unknown]

NARRATIVE: CASE EVENT DATE: 20140516
